FAERS Safety Report 10452535 (Version 1)
Quarter: 2014Q3

REPORT INFORMATION
  Report Type: Spontaneous
  Country: US (occurrence: None)
  Receive Date: 20140911
  Receipt Date: 20140911
  Transmission Date: 20150326
  Serious: Yes (Death)
  Sender: FDA-Public Use
  Company Number: SP08242

PATIENT
  Age: 58 Year
  Sex: Female
  Weight: 85.9 kg

DRUGS (15)
  1. ZOFRAN [Concomitant]
     Active Substance: ONDANSETRON HYDROCHLORIDE
  2. COLACE SYRUP/MINERAL OIL (ENEMA) [Concomitant]
  3. ACETAMINOPHEN. [Concomitant]
     Active Substance: ACETAMINOPHEN
  4. CHLORHEXIDINE [Concomitant]
     Active Substance: CHLORHEXIDINE
  5. DIPHENHYDRAMINE [Concomitant]
     Active Substance: DIPHENHYDRAMINE
  6. METOPROLOL [Concomitant]
     Active Substance: METOPROLOL
  7. PANTOPRAZOLE [Concomitant]
     Active Substance: PANTOPRAZOLE SODIUM
  8. PERCOCET [Concomitant]
     Active Substance: ACETAMINOPHEN\OXYCODONE HYDROCHLORIDE
  9. ENALAPRIL [Concomitant]
     Active Substance: ENALAPRIL
  10. HYDROMORPHONE [Concomitant]
     Active Substance: HYDROMORPHONE
  11. FAMOTIDINE. [Concomitant]
     Active Substance: FAMOTIDINE
  12. CHLORHEXIDINE [Concomitant]
     Active Substance: CHLORHEXIDINE
  13. HEPARIN [Concomitant]
     Active Substance: HEPARIN SODIUM
  14. RELISTOR [Suspect]
     Active Substance: METHYLNALTREXONE BROMIDE
     Indication: CONSTIPATION
     Dosage: 8 MG, ONCE SUBCUTANEOUS
     Route: 058
     Dates: start: 20140825, end: 20140825
  15. ALBUTEROL. [Concomitant]
     Active Substance: ALBUTEROL

REACTIONS (5)
  - Pulse absent [None]
  - Multi-organ failure [None]
  - Small intestinal obstruction [None]
  - Hypotension [None]
  - Hypoglycaemia [None]

NARRATIVE: CASE EVENT DATE: 20140826
